FAERS Safety Report 20140206 (Version 1)
Quarter: 2021Q4

REPORT INFORMATION
  Report Type: Spontaneous
  Country: US (occurrence: None)
  Receive Date: 20211201
  Receipt Date: 20211201
  Transmission Date: 20220303
  Serious: Yes (Life-Threatening, Hospitalization)
  Sender: FDA-Public Use
  Company Number: None

PATIENT
  Age: 38 Year
  Sex: Male
  Weight: 68.04 kg

DRUGS (2)
  1. SCOPOLAMINE [Suspect]
     Active Substance: SCOPOLAMINE
     Dates: start: 20211119, end: 20211121
  2. SCOPOLAMINE [Concomitant]
     Active Substance: SCOPOLAMINE
     Dates: start: 20211119, end: 20211121

REACTIONS (6)
  - Angioedema [None]
  - Dizziness [None]
  - Vision blurred [None]
  - Arthralgia [None]
  - Peripheral swelling [None]
  - Loss of consciousness [None]

NARRATIVE: CASE EVENT DATE: 20211123
